FAERS Safety Report 8732379 (Version 5)
Quarter: 2013Q3

REPORT INFORMATION
  Report Type: Report from Study
  Country: GB (occurrence: GB)
  Receive Date: 20120820
  Receipt Date: 20130724
  Transmission Date: 20140515
  Serious: Yes (Hospitalization)
  Sender: FDA-Public Use
  Company Number: GB-GLAXOSMITHKLINE-B0823484A

PATIENT
  Age: 48 Year
  Sex: Male

DRUGS (15)
  1. OFATUMUMAB [Suspect]
     Indication: RICHTER^S SYNDROME
     Route: 042
     Dates: start: 20120730
  2. CYCLOPHOSPHAMIDE [Suspect]
     Indication: RICHTER^S SYNDROME
     Dosage: 1700MG PER DAY
     Route: 042
     Dates: start: 20120727
  3. VINCRISTINE [Suspect]
     Indication: RICHTER^S SYNDROME
     Dosage: 2MG PER DAY
     Route: 042
     Dates: start: 20120727
  4. DOXORUBICIN [Suspect]
     Indication: RICHTER^S SYNDROME
     Dosage: 120MG PER DAY
     Route: 042
     Dates: start: 20120727
  5. PREDNISOLONE [Suspect]
     Indication: RICHTER^S SYNDROME
     Dosage: 95MG PER DAY
     Route: 048
     Dates: start: 20120727, end: 20120731
  6. RANITIDINE [Concomitant]
     Dosage: 150MG TWICE PER DAY
     Route: 048
     Dates: start: 201207
  7. VORICONAZOLE [Concomitant]
     Indication: ANTIFUNGAL PROPHYLAXIS
     Dosage: 200MG TWICE PER DAY
     Route: 048
  8. SERTRALINE [Concomitant]
     Indication: DEPRESSION
     Dosage: 200MG PER DAY
     Route: 048
  9. PREDNISOLONE [Concomitant]
     Route: 048
  10. ACICLOVIR [Concomitant]
     Indication: ANTIVIRAL PROPHYLAXIS
     Dosage: 200MG THREE TIMES PER DAY
     Route: 048
     Dates: start: 201207
  11. OXYCODONE [Concomitant]
     Dosage: 10MG PER DAY
     Route: 048
  12. SEPTRIN [Concomitant]
     Indication: ANTIFUNGAL PROPHYLAXIS
     Dosage: 480MG TWICE PER DAY
     Route: 048
  13. ONDANSETRON [Concomitant]
     Indication: PROPHYLAXIS
     Dosage: 4MG THREE TIMES PER DAY
     Route: 048
  14. METOCLOPRAMIDE [Concomitant]
     Indication: PROPHYLAXIS
     Dosage: 10MG THREE TIMES PER DAY
     Route: 048
  15. TEMAZEPAM [Concomitant]
     Indication: INSOMNIA
     Dosage: 10MG PER DAY
     Route: 048

REACTIONS (2)
  - Neutropenic sepsis [Recovered/Resolved]
  - Pyrexia [Recovered/Resolved]
